FAERS Safety Report 8089443-5 (Version None)
Quarter: 2012Q1

REPORT INFORMATION
  Report Type: 
  Country: None (occurrence: None)
  Receive Date: 20120128
  Receipt Date: 20110620
  Transmission Date: 20120608
  Serious: No
  Sender: FDA-Public Use
  Company Number: US-ABBOTT-11P-163-0725544-00

PATIENT
  Age: 9 Year
  Sex: Male

DRUGS (9)
  1. HUMIRA [Suspect]
     Indication: JUVENILE ARTHRITIS
     Dates: start: 20110414
  2. OMEGA FISH OIL [Concomitant]
     Indication: SUPPLEMENTATION THERAPY
     Dosage: TID
  3. PREDNISONE TAB [Concomitant]
     Indication: PRODUCT USED FOR UNKNOWN INDICATION
  4. PREVACID [Concomitant]
     Indication: PRODUCT USED FOR UNKNOWN INDICATION
  5. ACETAMINOPHEN [Concomitant]
     Indication: PAIN
     Dosage: AS NEEDED
  6. CELADRON [Concomitant]
     Indication: ARTHRALGIA
     Dosage: DAILY
  7. CELEBREX [Concomitant]
     Indication: PRODUCT USED FOR UNKNOWN INDICATION
  8. ZANAFLEX [Concomitant]
     Indication: PRODUCT USED FOR UNKNOWN INDICATION
     Dosage: AT BEDTIME
  9. MULTI-VITAMIN [Concomitant]
     Indication: VITAMIN SUPPLEMENTATION
     Dosage: LIQUID DAILY

REACTIONS (2)
  - BURNING SENSATION [None]
  - ANXIETY [None]
